FAERS Safety Report 7456747-6 (Version None)
Quarter: 2011Q2

REPORT INFORMATION
  Report Type: 
  Country: None (occurrence: None)
  Receive Date: 20110503
  Receipt Date: 20110425
  Transmission Date: 20111010
  Serious: Yes (Other)
  Sender: FDA-Public Use
  Company Number: US-AMGEN-USASP2011021377

PATIENT
  Age: 30 Year
  Sex: Female

DRUGS (1)
  1. ENBREL [Suspect]
     Indication: RHEUMATOID ARTHRITIS
     Dosage: UNK, UNK
     Dates: start: 20110318

REACTIONS (7)
  - PYREXIA [None]
  - HEADACHE [None]
  - LIP SWELLING [None]
  - SWELLING FACE [None]
  - DYSPHONIA [None]
  - HYPERSENSITIVITY [None]
  - EYELID OEDEMA [None]
